FAERS Safety Report 20483324 (Version 1)
Quarter: 2022Q1

REPORT INFORMATION
  Report Type: Spontaneous
  Country: IN (occurrence: IN)
  Receive Date: 20220217
  Receipt Date: 20220217
  Transmission Date: 20220423
  Serious: Yes (Other)
  Sender: FDA-Public Use
  Company Number: IN-Shilpa Medicare Limited-SML-IN-2022-00138

PATIENT
  Age: 23 Year
  Sex: Male

DRUGS (2)
  1. IMATINIB [Suspect]
     Active Substance: IMATINIB
     Indication: Myeloproliferative neoplasm
     Route: 065
  2. IMATINIB [Suspect]
     Active Substance: IMATINIB
     Indication: Eosinophilia

REACTIONS (6)
  - Drug resistance [Unknown]
  - Acute myeloid leukaemia [Unknown]
  - Bone marrow reticulin fibrosis [Unknown]
  - Gene mutation [Unknown]
  - Leukocytosis [Unknown]
  - Pyrexia [Unknown]
